FAERS Safety Report 20244395 (Version 1)
Quarter: 2021Q4

REPORT INFORMATION
  Report Type: Spontaneous
  Country: US (occurrence: US)
  Receive Date: 20211229
  Receipt Date: 20211229
  Transmission Date: 20220303
  Serious: No
  Sender: FDA-Public Use
  Company Number: US-MTPC-MTDA2021-0030931

PATIENT
  Sex: Male

DRUGS (2)
  1. RADICAVA [Suspect]
     Active Substance: EDARAVONE
     Indication: Amyotrophic lateral sclerosis
     Dosage: 60 MILLIGRAM, QD FOR 14 DAYS THEN 10 DAYS EVERY 2 WEEKS
     Route: 042
     Dates: start: 20210714, end: 20211021
  2. RILUZOLE [Concomitant]
     Active Substance: RILUZOLE
     Indication: Product used for unknown indication
     Dosage: UNK
     Route: 065
     Dates: start: 20210520

REACTIONS (2)
  - Muscle twitching [Recovered/Resolved]
  - Drug ineffective [Recovered/Resolved]
